FAERS Safety Report 20214584 (Version 1)
Quarter: 2021Q4

REPORT INFORMATION
  Report Type: Spontaneous
  Country: US (occurrence: None)
  Receive Date: 20211221
  Receipt Date: 20211221
  Transmission Date: 20220304
  Serious: No
  Sender: FDA-Public Use
  Company Number: US-Eisai Medical Research-EC-2021-104837

PATIENT
  Sex: Female

DRUGS (4)
  1. LENVIMA [Suspect]
     Active Substance: LENVATINIB
     Indication: Endometrial cancer
     Dosage: DOSE AND FREQUENCY NOT PROVIDED
     Route: 048
  2. LENVIMA [Suspect]
     Active Substance: LENVATINIB
     Dosage: UNKNOWN REDUCED DOSE
     Route: 048
  3. KEYTRUDA [Suspect]
     Active Substance: PEMBROLIZUMAB
     Indication: Endometrial cancer
     Dosage: DOSE AND FREQUENCY NOT PROVIDED
     Route: 048
  4. SANCUSO [Suspect]
     Active Substance: GRANISETRON
     Indication: Endometrial cancer
     Dosage: DOSE AND FREQUENCY NOT PROVIDED
     Route: 048

REACTIONS (5)
  - Fatigue [Recovered/Resolved]
  - Thyroid disorder [Recovered/Resolved]
  - Stomatitis [Recovered/Resolved]
  - Blister [Recovered/Resolved]
  - Skin discolouration [Recovered/Resolved]
